FAERS Safety Report 6796028-7 (Version None)
Quarter: 2010Q2

REPORT INFORMATION
  Report Type: 
  Country: None (occurrence: None)
  Receive Date: 20100625
  Receipt Date: 20100615
  Transmission Date: 20101027
  Serious: No
  Sender: FDA-Public Use
  Company Number: US-B.I. PHARMACEUTICALS,INC./RIDGEFIELD-2010-BP-06833BP

PATIENT
  Sex: Female

DRUGS (10)
  1. SPIRIVA [Suspect]
     Indication: ASTHMA
     Dosage: 18 MCG
     Route: 055
     Dates: start: 20090701
  2. CRESTOR [Concomitant]
     Indication: BLOOD CHOLESTEROL INCREASED
  3. LISINOPRIL [Concomitant]
     Indication: HYPERTENSION
  4. ADDERALL 10 [Concomitant]
     Indication: ATTENTION DEFICIT/HYPERACTIVITY DISORDER
  5. ASTEPRO [Concomitant]
     Indication: ASTHMA
  6. STOOL SOFTENER [Concomitant]
     Indication: CONSTIPATION
  7. ALBUTEROL [Concomitant]
     Indication: ASTHMA
  8. VITAMINS [Concomitant]
     Indication: PROPHYLAXIS
  9. VICODIN [Concomitant]
     Indication: BACK PAIN
  10. CYCLOBENZAPRINE [Concomitant]
     Indication: BACK PAIN

REACTIONS (2)
  - DYSURIA [None]
  - PAIN [None]
